FAERS Safety Report 10689466 (Version 1)
Quarter: 2015Q1

REPORT INFORMATION
  Report Type: Spontaneous
  Country: US (occurrence: US)
  Receive Date: 20150105
  Receipt Date: 20150105
  Transmission Date: 20150720
  Serious: No
  Sender: FDA-Public Use
  Company Number: US-BIOGENIDEC-2014BI138982

PATIENT
  Sex: Female

DRUGS (1)
  1. TECFIDERA [Suspect]
     Active Substance: DIMETHYL FUMARATE
     Indication: MULTIPLE SCLEROSIS

REACTIONS (8)
  - Dizziness [Unknown]
  - Nausea [Unknown]
  - Headache [Unknown]
  - Dysphagia [Unknown]
  - Flushing [Unknown]
  - Tremor [Unknown]
  - Dyspnoea [Unknown]
  - Chest discomfort [Unknown]
